FAERS Safety Report 4883439-X (Version None)
Quarter: 2006Q1

REPORT INFORMATION
  Report Type: 
  Country: None (occurrence: None)
  Receive Date: 20060118
  Receipt Date: 20060110
  Transmission Date: 20060701
  Serious: Yes (Other)
  Sender: FDA-Public Use
  Company Number: 2006AC00066

PATIENT
  Age: 19076 Day
  Sex: Female

DRUGS (2)
  1. TAMOXIFEN CITRATE [Suspect]
     Indication: BREAST CANCER
     Route: 048
     Dates: start: 20050501
  2. 5'FEC [Concomitant]

REACTIONS (3)
  - DRY EYE [None]
  - LACRIMATION INCREASED [None]
  - VISUAL DISTURBANCE [None]
